FAERS Safety Report 8886940 (Version 2)
Quarter: 2013Q2

REPORT INFORMATION
  Report Type: Spontaneous
  Country: BR (occurrence: BR)
  Receive Date: 20121105
  Receipt Date: 20130412
  Transmission Date: 20140414
  Serious: Yes (Other)
  Sender: FDA-Public Use
  Company Number: PHHY2012BR097547

PATIENT
  Age: 50 Year
  Sex: Female

DRUGS (1)
  1. ONBREZ [Suspect]
     Indication: CHRONIC OBSTRUCTIVE PULMONARY DISEASE
     Dosage: 150 UG, QD
     Route: 048
     Dates: start: 201206

REACTIONS (3)
  - Malaise [Recovered/Resolved]
  - Tachycardia [Recovered/Resolved]
  - Incorrect route of drug administration [Unknown]
